FAERS Safety Report 20875477 (Version 2)
Quarter: 2022Q2

REPORT INFORMATION
  Report Type: Spontaneous
  Country: US (occurrence: US)
  Receive Date: 20220526
  Receipt Date: 20220530
  Transmission Date: 20220721
  Serious: Yes (Other)
  Sender: FDA-Public Use
  Company Number: US-009507513-2205USA004286

PATIENT
  Sex: Female

DRUGS (3)
  1. JANUVIA [Suspect]
     Active Substance: SITAGLIPTIN PHOSPHATE
     Indication: Type 2 diabetes mellitus
     Dosage: 25 MILLIGRAM, ONCE DAILY
     Route: 048
     Dates: start: 202011, end: 202205
  2. CALCIUM CARBONATE\CHOLECALCIFEROL [Concomitant]
     Active Substance: CALCIUM CARBONATE\CHOLECALCIFEROL
     Dosage: 1 TABLET BY MOUTH DAILY ORAL
     Route: 048
  3. LOPERAMIDE [Concomitant]
     Active Substance: LOPERAMIDE
     Indication: Diarrhoea
     Dosage: 2 MG BY MOUTH AS NEEDED
     Route: 048

REACTIONS (11)
  - Cerebrovascular accident [Unknown]
  - Hypothyroidism [Unknown]
  - Atrial fibrillation [Unknown]
  - Rash vesicular [Not Recovered/Not Resolved]
  - Piloerection [Not Recovered/Not Resolved]
  - Type V hyperlipidaemia [Unknown]
  - Coronary artery disease [Unknown]
  - Essential hypertension [Unknown]
  - Eschar [Unknown]
  - Localised oedema [Unknown]
  - Drug hypersensitivity [Not Recovered/Not Resolved]

NARRATIVE: CASE EVENT DATE: 20210101
